FAERS Safety Report 23277191 (Version 1)
Quarter: 2023Q4

REPORT INFORMATION
  Report Type: Spontaneous
  Country: GB (occurrence: None)
  Receive Date: 20231207
  Receipt Date: 20231207
  Transmission Date: 20240110
  Serious: Yes (Disabling)
  Sender: FDA-Public Use
  Company Number: None

PATIENT
  Age: 51 Year
  Sex: Male
  Weight: 63 kg

DRUGS (9)
  1. CIPROFLOXACIN [Suspect]
     Active Substance: CIPROFLOXACIN
     Indication: Orchitis
     Dates: start: 20190312, end: 20190405
  2. TAMSULOSIN [Concomitant]
     Active Substance: TAMSULOSIN
  3. QVAR [Concomitant]
     Active Substance: BECLOMETHASONE DIPROPIONATE
  4. ALBUTEROL [Concomitant]
     Active Substance: ALBUTEROL
  5. VITAMIN C [Concomitant]
     Active Substance: ASCORBIC ACID
  6. D-MANNOSE [Concomitant]
  7. VITAMIN B12 [Concomitant]
     Active Substance: CYANOCOBALAMIN
  8. VITAMIN D NOS [Concomitant]
     Active Substance: VITAMIN D NOS
  9. MAGNESIUM [Concomitant]
     Active Substance: MAGNESIUM

REACTIONS (10)
  - Groin pain [None]
  - Tendon pain [None]
  - Arthralgia [None]
  - Pain in extremity [None]
  - Soft tissue disorder [None]
  - Pain in extremity [None]
  - Arthralgia [None]
  - Back pain [None]
  - Neck pain [None]
  - Pain in extremity [None]

NARRATIVE: CASE EVENT DATE: 20190323
